FAERS Safety Report 8576915-X (Version None)
Quarter: 2012Q3

REPORT INFORMATION
  Report Type: 
  Country: None (occurrence: None)
  Receive Date: 20120807
  Receipt Date: 20120802
  Transmission Date: 20120928
  Serious: Yes (Hospitalization)
  Sender: FDA-Public Use
  Company Number: US-B.I. PHARMACEUTICALS,INC./RIDGEFIELD-2012-BP-17430BP

PATIENT
  Sex: Male
  Weight: 84 kg

DRUGS (6)
  1. SYMBICORT [Concomitant]
     Indication: LUNG DISORDER
  2. OXYGEN [Concomitant]
     Indication: DYSPNOEA
     Route: 055
  3. SPIRIVA [Suspect]
     Indication: DYSPNOEA
     Dosage: 18 MCG
     Route: 048
     Dates: start: 20120802, end: 20120802
  4. SYMBICORT [Concomitant]
     Indication: DYSPNOEA
     Route: 055
  5. SPIRIVA [Suspect]
     Indication: LUNG DISORDER
     Dosage: 18 MCG
     Route: 055
     Dates: start: 20080101
  6. OXYGEN [Concomitant]
     Indication: LUNG DISORDER

REACTIONS (9)
  - ASTHENIA [None]
  - INFECTION [None]
  - ABDOMINAL DISCOMFORT [None]
  - ABASIA [None]
  - INCORRECT ROUTE OF DRUG ADMINISTRATION [None]
  - DYSPEPSIA [None]
  - PNEUMONIA [None]
  - WEIGHT DECREASED [None]
  - MALAISE [None]
